FAERS Safety Report 7628587-6 (Version None)
Quarter: 2011Q3

REPORT INFORMATION
  Report Type: 
  Country: None (occurrence: None)
  Receive Date: 20110722
  Receipt Date: 20110713
  Transmission Date: 20111222
  Serious: Yes (Other)
  Sender: FDA-Public Use
  Company Number: US-JNJFOC-20110706433

PATIENT
  Age: 26 Year
  Sex: Male
  Weight: 92.99 kg

DRUGS (2)
  1. MELOXICAM [Concomitant]
     Indication: ILL-DEFINED DISORDER
  2. STELARA [Suspect]
     Indication: PSORIASIS
     Route: 058

REACTIONS (5)
  - RESPIRATORY DISORDER [None]
  - HAEMATOCHEZIA [None]
  - DIARRHOEA [None]
  - CHILLS [None]
  - PYREXIA [None]
